FAERS Safety Report 14102314 (Version 1)
Quarter: 2017Q4

REPORT INFORMATION
  Report Type: Spontaneous
  Country: US (occurrence: US)
  Receive Date: 20171018
  Receipt Date: 20171018
  Transmission Date: 20180321
  Serious: Yes (Death)
  Sender: FDA-Public Use
  Company Number: None

PATIENT
  Sex: Male
  Weight: 15 kg

DRUGS (3)
  1. ATIVAN [Suspect]
     Active Substance: LORAZEPAM
     Indication: FEBRILE CONVULSION
     Dosage: ?          OTHER ROUTE:INTRAVENOUSLY?
     Route: 042
     Dates: start: 20170906, end: 20170907
  2. VALIUM [Suspect]
     Active Substance: DIAZEPAM
     Indication: FEBRILE CONVULSION
     Route: 042
  3. AMOXICILLAN [Concomitant]
     Active Substance: AMOXICILLIN

REACTIONS (1)
  - Coma [None]

NARRATIVE: CASE EVENT DATE: 20170906
